FAERS Safety Report 18103605 (Version 1)
Quarter: 2020Q3

REPORT INFORMATION
  Report Type: Spontaneous
  Country: US (occurrence: US)
  Receive Date: 20200803
  Receipt Date: 20200803
  Transmission Date: 20201103
  Serious: No
  Sender: FDA-Public Use
  Company Number: US-MYLANLABS-2020M1067593

PATIENT
  Age: 74 Year
  Sex: Female

DRUGS (1)
  1. CLORAZEPIC ACID [Suspect]
     Active Substance: CLORAZEPIC ACID
     Indication: PRODUCT USED FOR UNKNOWN INDICATION
     Dosage: UNK

REACTIONS (6)
  - Hypersensitivity [Unknown]
  - Dizziness [Unknown]
  - Nausea [Unknown]
  - Abdominal discomfort [Unknown]
  - Abdominal pain upper [Unknown]
  - Gluten sensitivity [Unknown]
